FAERS Safety Report 4855172-1 (Version None)
Quarter: 2005Q4

REPORT INFORMATION
  Report Type: 
  Country: None (occurrence: None)
  Receive Date: 20051125
  Receipt Date: 20050927
  Transmission Date: 20060501
  Serious: Yes (Hospitalization)
  Sender: FDA-Public Use
  Company Number: US-JNJFOC-20050803781

PATIENT
  Age: 82 Year
  Sex: Male
  Weight: 84.369 kg

DRUGS (3)
  1. LEVAQUIN [Suspect]
     Indication: PNEUMONIA
     Dosage: 500 MG, 1 IN 1 DAY, ORAL
     Route: 048
     Dates: start: 20050325, end: 20050330
  2. LANOXIN [Concomitant]
  3. MONOKET [Concomitant]

REACTIONS (9)
  - ALOPECIA [None]
  - ASTHENIA [None]
  - CARDIAC DISORDER [None]
  - DIZZINESS [None]
  - PLEURAL EFFUSION [None]
  - PRURITUS [None]
  - RENAL DISORDER [None]
  - URINARY INCONTINENCE [None]
  - WEIGHT DECREASED [None]
